FAERS Safety Report 12901137 (Version 3)
Quarter: 2016Q4

REPORT INFORMATION
  Report Type: Report from Study
  Country: PL (occurrence: PL)
  Receive Date: 20161101
  Receipt Date: 20161122
  Transmission Date: 20170207
  Serious: Yes (Life-Threatening, Hospitalization, Other)
  Sender: FDA-Public Use
  Company Number: PL-BRISTOL-MYERS SQUIBB COMPANY-BMS-2016-041881

PATIENT
  Age: 66 Year
  Sex: Male
  Weight: 86 kg

DRUGS (1)
  1. NIVOLUMAB [Suspect]
     Active Substance: NIVOLUMAB
     Indication: NON-SMALL CELL LUNG CANCER
     Dosage: 258 MG, UNK
     Route: 065
     Dates: start: 20160324, end: 20160505

REACTIONS (3)
  - Metastases to lymph nodes [Not Recovered/Not Resolved]
  - Urinary tract infection [Unknown]
  - Bladder cancer [Unknown]

NARRATIVE: CASE EVENT DATE: 20160511
